FAERS Safety Report 4837421-9 (Version None)
Quarter: 2005Q4

REPORT INFORMATION
  Report Type: 
  Country: None (occurrence: None)
  Receive Date: 20051128
  Receipt Date: 20051117
  Transmission Date: 20060501
  Serious: Yes (Other)
  Sender: FDA-Public Use
  Company Number: DE-JNJFOC-20051104650

PATIENT
  Age: 40 Year
  Sex: Male

DRUGS (5)
  1. HALDOL [Suspect]
     Indication: DRUG USE FOR UNKNOWN INDICATION
     Route: 065
  2. LEPONEX [Suspect]
     Indication: DRUG USE FOR UNKNOWN INDICATION
  3. ZYPREXA [Concomitant]
  4. TAVOR [Concomitant]
  5. CONVULEX [Concomitant]

REACTIONS (1)
  - PNEUMONIA [None]
